FAERS Safety Report 7564100-X (Version None)
Quarter: 2011Q2

REPORT INFORMATION
  Report Type: 
  Country: None (occurrence: None)
  Receive Date: 20110622
  Receipt Date: 20110613
  Transmission Date: 20111010
  Serious: Yes (Hospitalization, Other)
  Sender: FDA-Public Use
  Company Number: US-ASTRAZENECA-2011SE36044

PATIENT
  Age: 73 Year
  Sex: Female
  Weight: 63.5 kg

DRUGS (9)
  1. ATACAND [Suspect]
     Route: 048
  2. HYDROCHLOROTHIAZIDE [Suspect]
     Dates: start: 20110307
  3. NOPALEA [Suspect]
     Indication: BLOOD TRIGLYCERIDES INCREASED
     Dates: start: 20100101
  4. XANAX [Concomitant]
  5. LIDOCAINE [Suspect]
     Indication: INGROWING NAIL
     Dates: start: 20100101
  6. TOPROL-XL [Suspect]
     Route: 048
  7. NORVASC [Concomitant]
  8. ATACAND [Suspect]
     Indication: HYPERTENSION
     Route: 048
     Dates: start: 19960101
  9. NOPALEA [Suspect]
     Indication: ARTHRALGIA
     Dates: start: 20100101

REACTIONS (9)
  - BLOOD PRESSURE INCREASED [None]
  - ABDOMINAL PAIN [None]
  - CHOLECYSTECTOMY [None]
  - HYPOAESTHESIA [None]
  - ANAEMIA [None]
  - PLATELET COUNT DECREASED [None]
  - LOSS OF CONSCIOUSNESS [None]
  - BURNING SENSATION [None]
  - BLOOD TRIGLYCERIDES INCREASED [None]
